FAERS Safety Report 14391914 (Version 9)
Quarter: 2018Q3

REPORT INFORMATION
  Report Type: Spontaneous
  Country: US (occurrence: US)
  Receive Date: 20180116
  Receipt Date: 20180828
  Transmission Date: 20181010
  Serious: No
  Sender: FDA-Public Use
  Company Number: US-PFIZER INC-2018018835

PATIENT
  Age: 51 Year
  Sex: Female
  Weight: 81 kg

DRUGS (1)
  1. DAPTOMYCIN. [Suspect]
     Active Substance: DAPTOMYCIN
     Indication: OSTEOMYELITIS
     Dosage: 500 MG, DAILY (EVERY 24 HOURS)
     Route: 042
     Dates: start: 20171220, end: 20180105

REACTIONS (2)
  - Chills [Recovered/Resolved]
  - Pyrexia [Unknown]

NARRATIVE: CASE EVENT DATE: 20171226
